FAERS Safety Report 9832953 (Version 2)
Quarter: 2014Q1

REPORT INFORMATION
  Report Type: Spontaneous
  Country: US (occurrence: US)
  Receive Date: 20140121
  Receipt Date: 20140121
  Transmission Date: 20141002
  Serious: Yes (Hospitalization)
  Sender: FDA-Public Use
  Company Number: US-INCYTE CORPORATION-2012IN001032

PATIENT
  Age: 66 Year
  Sex: Male

DRUGS (8)
  1. JAKAFI [Suspect]
     Indication: MYELOFIBROSIS
     Dosage: 7.5 MG, BID (1/2 OF 15 MG TABLET)
     Route: 048
  2. LEXAPRO [Concomitant]
  3. VITAMIN D [Concomitant]
  4. ALPRAZOLAM [Concomitant]
  5. FENTANYL [Concomitant]
  6. HYDROCODONE [Concomitant]
  7. IBUPROFEN [Concomitant]
  8. PROTONIX [Concomitant]

REACTIONS (2)
  - Urinary tract infection [Recovered/Resolved]
  - Wrong technique in drug usage process [Unknown]
